FAERS Safety Report 8895333 (Version 1)
Quarter: 2012Q4

REPORT INFORMATION
  Report Type: 
  Country: AT (occurrence: AT)
  Receive Date: 20121108
  Receipt Date: 20121108
  Transmission Date: 20130627
  Serious: Yes (Other)
  Sender: FDA-Public Use
  Company Number: AT-PFIZER INC-2012277321

PATIENT
  Age: 43 Year
  Sex: Female
  Weight: 60 kg

DRUGS (1)
  1. FARMORUBICIN [Suspect]
     Indication: CHEMOTHERAPY
     Dosage: 200 mg, UNK
     Route: 042
     Dates: start: 20120730

REACTIONS (4)
  - Blood pressure decreased [Recovered/Resolved]
  - Nausea [Recovered/Resolved]
  - Abdominal pain [Recovered/Resolved]
  - Rash generalised [Recovered/Resolved]
